FAERS Safety Report 23518253 (Version 5)
Quarter: 2024Q3

REPORT INFORMATION
  Report Type: Spontaneous
  Country: CN (occurrence: CN)
  Receive Date: 20240213
  Receipt Date: 20240814
  Transmission Date: 20241016
  Serious: Yes (Hospitalization, Other)
  Sender: PFIZER
  Company Number: CN-MLMSERVICE-20240205-4817922-1

PATIENT
  Age: 55 Year
  Sex: Female
  Weight: 61 kg

DRUGS (8)
  1. PACLITAXEL [Suspect]
     Active Substance: PACLITAXEL
     Indication: Squamous cell carcinoma of the cervix
     Dosage: FIRST AND SECOND CYCLES OF TREATMENT
     Route: 041
     Dates: start: 20211202, end: 20211223
  2. PACLITAXEL [Suspect]
     Active Substance: PACLITAXEL
     Indication: Chemotherapy
     Dosage: FOURTH AND FIFTH CYCLE OF TREATMENT
     Route: 041
     Dates: start: 20220209, end: 20220303
  3. CAMRELIZUMAB [Concomitant]
     Active Substance: CAMRELIZUMAB
     Indication: Squamous cell carcinoma of the cervix
     Dosage: D1, Q21D (FIRST AND SECOND CYCLES OF TREATMENT)
     Route: 041
     Dates: start: 20211202, end: 20211223
  4. CAMRELIZUMAB [Concomitant]
     Active Substance: CAMRELIZUMAB
     Indication: Metastases to bone
     Dosage: D1 (THIRD TO FIFTH CYCLES OF TREATMENT)
     Route: 041
     Dates: start: 20220112, end: 20220303
  5. CAMRELIZUMAB [Concomitant]
     Active Substance: CAMRELIZUMAB
     Indication: Immunomodulatory therapy
  6. CISPLATIN [Concomitant]
     Active Substance: CISPLATIN
     Indication: Metastatic squamous cell carcinoma
     Dosage: D1 (FIRST TO FIFTH CYCLE OF TREATMENT)
     Route: 041
     Dates: start: 20211202, end: 20220303
  7. CISPLATIN [Concomitant]
     Active Substance: CISPLATIN
     Indication: Metastases to bone
     Dosage: D2 (FIRST TO FIFTH CYCLE OF TREATMENT)
     Route: 041
     Dates: start: 20211202, end: 20220303
  8. CISPLATIN [Concomitant]
     Active Substance: CISPLATIN
     Indication: Chemotherapy

REACTIONS (2)
  - Bone pain [Recovered/Resolved]
  - Off label use [Unknown]

NARRATIVE: CASE EVENT DATE: 20211202
